FAERS Safety Report 19766205 (Version 20)
Quarter: 2024Q4

REPORT INFORMATION
  Report Type: Report from Study
  Country: US (occurrence: US)
  Receive Date: 20210830
  Receipt Date: 20241125
  Transmission Date: 20250115
  Serious: Yes (Hospitalization, Other)
  Sender: TAKEDA
  Company Number: US-SHIRE-US202017078

PATIENT
  Sex: Female
  Weight: 83 kg

DRUGS (58)
  1. HUMAN IMMUNOGLOBULIN G\HYALURONIDASE RECOMBINANT HUMAN [Suspect]
     Active Substance: HUMAN IMMUNOGLOBULIN G\HYALURONIDASE (HUMAN RECOMBINANT)
     Indication: Primary immunodeficiency syndrome
     Dosage: 50 GRAM, Q4WEEKS
     Dates: start: 20151228
  2. HUMAN IMMUNOGLOBULIN G\HYALURONIDASE RECOMBINANT HUMAN [Suspect]
     Active Substance: HUMAN IMMUNOGLOBULIN G\HYALURONIDASE (HUMAN RECOMBINANT)
     Indication: Immunodeficiency
  3. HUMAN IMMUNOGLOBULIN G\HYALURONIDASE RECOMBINANT HUMAN [Suspect]
     Active Substance: HUMAN IMMUNOGLOBULIN G\HYALURONIDASE (HUMAN RECOMBINANT)
     Indication: Hypogammaglobulinaemia
  4. SYNTHROID [Concomitant]
     Active Substance: LEVOTHYROXINE SODIUM
     Dosage: UNK
  5. INJECTAFER [Concomitant]
     Active Substance: FERRIC CARBOXYMALTOSE
     Dosage: UNK
  6. ADAPALENE [Concomitant]
     Active Substance: ADAPALENE
     Dosage: UNK
  7. NABUMETONE [Concomitant]
     Active Substance: NABUMETONE
     Dosage: UNK
  8. ZYRTEC-D ALLERGY AND CONGESTION [Concomitant]
     Active Substance: CETIRIZINE HYDROCHLORIDE\PSEUDOEPHEDRINE HYDROCHLORIDE
     Dosage: UNK
  9. BOTOX [Concomitant]
     Active Substance: ONABOTULINUMTOXINA
     Dosage: UNK
  10. TRAZODONE HCL [Concomitant]
     Active Substance: TRAZODONE HYDROCHLORIDE
     Dosage: UNK
  11. LASIX [Concomitant]
     Active Substance: FUROSEMIDE
     Dosage: UNK
  12. ADDERALL [Concomitant]
     Active Substance: AMPHETAMINE ASPARTATE\AMPHETAMINE SULFATE\DEXTROAMPHETAMINE SACCHARATE\DEXTROAMPHETAMINE SULFATE
     Dosage: UNK
  13. NEXIUM [Concomitant]
     Active Substance: ESOMEPRAZOLE MAGNESIUM
     Dosage: UNK
  14. VITAMIN D [Concomitant]
     Active Substance: VITAMIN D NOS
     Dosage: UNK
  15. PROPRANOLOL HYDROCHLORIDE [Concomitant]
     Active Substance: PROPRANOLOL HYDROCHLORIDE
     Dosage: UNK
  16. SEROQUEL [Concomitant]
     Active Substance: QUETIAPINE FUMARATE
     Dosage: UNK
  17. VIIBRYD [Concomitant]
     Active Substance: VILAZODONE HYDROCHLORIDE
     Dosage: UNK
  18. BUSPIRONE HCL [Concomitant]
     Active Substance: BUSPIRONE HYDROCHLORIDE
     Dosage: UNK
  19. ASPIRIN [Concomitant]
     Active Substance: ASPIRIN
     Dosage: UNK
  20. DEXAMETHASONE [Concomitant]
     Active Substance: DEXAMETHASONE
     Dosage: UNK
  21. PATADAY [Concomitant]
     Active Substance: OLOPATADINE HYDROCHLORIDE
     Dosage: UNK UNK, Q12H
  22. PATADAY [Concomitant]
     Active Substance: OLOPATADINE HYDROCHLORIDE
     Dosage: UNK, BID
  23. NUEDEXTA [Concomitant]
     Active Substance: DEXTROMETHORPHAN HYDROBROMIDE\QUINIDINE SULFATE
     Dosage: UNK
  24. DIPHENHYDRAMINE [Concomitant]
     Active Substance: DIPHENHYDRAMINE
     Dosage: UNK
  25. EPINEPHRINE [Concomitant]
     Active Substance: EPINEPHRINE
     Dosage: UNK
  26. SODIUM CHLORIDE [Concomitant]
     Active Substance: SODIUM CHLORIDE
     Dosage: UNK
  27. ACETAMINOPHEN [Concomitant]
     Active Substance: ACETAMINOPHEN
     Dosage: UNK
  28. CETIRIZINE HYDROCHLORIDE [Concomitant]
     Active Substance: CETIRIZINE HYDROCHLORIDE
     Dosage: UNK
  29. Lmx [Concomitant]
     Dosage: UNK
  30. ZYRTEC DAIICHI [Concomitant]
     Dosage: UNK
  31. PATANOL [Concomitant]
     Active Substance: OLOPATADINE HYDROCHLORIDE
     Dosage: UNK
  32. DOK [Concomitant]
     Active Substance: DOCUSATE SODIUM
     Dosage: UNK
  33. UNSPECIFIED INGREDIENT [Concomitant]
     Active Substance: UNSPECIFIED INGREDIENT
     Dosage: UNK
  34. VITAMIN 15 [Concomitant]
     Dosage: UNK
  35. SODIUM CHLORIDE [Concomitant]
     Active Substance: SODIUM CHLORIDE
     Dosage: UNK
  36. LIDOCAINE [Concomitant]
     Active Substance: LIDOCAINE
  37. DIPHENHYDRAMINE HYDROCHLORIDE [Concomitant]
     Active Substance: DIPHENHYDRAMINE HYDROCHLORIDE
  38. DOCUSATE SODIUM [Concomitant]
     Active Substance: DOCUSATE SODIUM
     Dosage: UNK
  39. METHOCARBAMOL [Concomitant]
     Active Substance: METHOCARBAMOL
  40. MACROBID [Concomitant]
     Active Substance: NITROFURANTOIN\NITROFURANTOIN MONOHYDRATE
  41. MECLIZINE HYDROCHLORIDE [Concomitant]
     Active Substance: MECLIZINE HYDROCHLORIDE
  42. TUMS [Concomitant]
     Active Substance: CALCIUM CARBONATE
  43. FISH OIL [Concomitant]
     Active Substance: FISH OIL
  44. FOLIC ACID [Concomitant]
     Active Substance: FOLIC ACID
  45. KEPPRA [Concomitant]
     Active Substance: LEVETIRACETAM
  46. LOPERAMIDE [Concomitant]
     Active Substance: LOPERAMIDE
  47. THIAMINE HYDROCHLORIDE [Concomitant]
     Active Substance: THIAMINE HYDROCHLORIDE
  48. MINERALS\VITAMINS [Concomitant]
     Active Substance: MINERALS\VITAMINS
  49. GABAPENTIN [Concomitant]
     Active Substance: GABAPENTIN
  50. SIMETHICONE (DIMETHICONE) [Concomitant]
     Active Substance: DIMETHICONE
  51. PHENOBARBITAL [Concomitant]
     Active Substance: PHENOBARBITAL
  52. UNSPECIFIED INGREDIENT [Concomitant]
     Active Substance: UNSPECIFIED INGREDIENT
  53. MUPIROCIN [Concomitant]
     Active Substance: MUPIROCIN
  54. FLUCONAZOLE [Concomitant]
     Active Substance: FLUCONAZOLE
  55. FUROSEMIDE [Concomitant]
     Active Substance: FUROSEMIDE
  56. VESICARE [Concomitant]
     Active Substance: SOLIFENACIN SUCCINATE
  57. HYDROXYZINE [Concomitant]
     Active Substance: HYDROXYZINE HYDROCHLORIDE
  58. COLACE [Concomitant]
     Active Substance: DOCUSATE SODIUM

REACTIONS (39)
  - Atelectasis [Unknown]
  - Gastroenteritis [Unknown]
  - Influenza [Unknown]
  - Delirium [Unknown]
  - Spinal fracture [Unknown]
  - COVID-19 pneumonia [Unknown]
  - Foot fracture [Unknown]
  - Cerebrovascular accident [Unknown]
  - Red blood cell abnormality [Unknown]
  - Blood iron decreased [Recovering/Resolving]
  - Sinusitis [Unknown]
  - Infusion site discharge [Unknown]
  - Palpitations [Unknown]
  - Weight increased [Unknown]
  - Postural orthostatic tachycardia syndrome [Unknown]
  - Fall [Unknown]
  - Illness [Unknown]
  - Haematoma [Unknown]
  - Root canal infection [Unknown]
  - Peripheral swelling [Unknown]
  - Dehydration [Unknown]
  - Dermatitis contact [Unknown]
  - Seasonal allergy [Unknown]
  - Walking aid user [Unknown]
  - Sinus disorder [Unknown]
  - Bronchitis [Unknown]
  - Vitamin D decreased [Unknown]
  - Blood zinc decreased [Unknown]
  - Multiple allergies [Unknown]
  - Product dose omission issue [Unknown]
  - Back injury [Unknown]
  - Asthenia [Unknown]
  - Back pain [Not Recovered/Not Resolved]
  - Malaise [Unknown]
  - Headache [Unknown]
  - Brain fog [Not Recovered/Not Resolved]
  - Migraine [Not Recovered/Not Resolved]
  - Dyspnoea [Unknown]
  - Fatigue [Unknown]
